FAERS Safety Report 9843165 (Version 1)
Quarter: 2014Q1

REPORT INFORMATION
  Report Type: Report from Study
  Country: US (occurrence: US)
  Receive Date: 20140124
  Receipt Date: 20140124
  Transmission Date: 20141002
  Serious: Yes (Other)
  Sender: FDA-Public Use
  Company Number: US-ABBVIE-14P-163-1191564-00

PATIENT
  Sex: Female
  Weight: 142.56 kg

DRUGS (19)
  1. HUMIRA [Suspect]
     Indication: PSORIATIC ARTHROPATHY
     Dates: start: 2010, end: 2012
  2. HUMIRA [Suspect]
     Dates: start: 2012
  3. METFORMIN [Concomitant]
     Indication: TYPE 2 DIABETES MELLITUS
  4. VASOTEC [Concomitant]
     Indication: HYPERTENSION
  5. NORVASC [Concomitant]
     Indication: HYPERTENSION
  6. CYMBALTA [Concomitant]
     Indication: DEPRESSION
  7. CYMBALTA [Concomitant]
     Indication: FIBROMYALGIA
  8. DEPAKOTE [Concomitant]
     Indication: MIGRAINE
  9. UNKNOWN MED [Concomitant]
     Indication: DRY MOUTH
  10. SYNTHROID [Concomitant]
     Indication: HYPOTHYROIDISM
  11. ELAVIL [Concomitant]
     Indication: DEPRESSION
  12. ELAVIL [Concomitant]
     Indication: PAIN
  13. NEURONTIN [Concomitant]
     Indication: DIABETIC NEUROPATHY
  14. UNKNOWN MED [Concomitant]
     Indication: RESTLESS LEGS SYNDROME
  15. FISH OIL [Concomitant]
     Indication: PRODUCT USED FOR UNKNOWN INDICATION
  16. ASPIRIN [Concomitant]
     Indication: PRODUCT USED FOR UNKNOWN INDICATION
  17. MULTIVITAMIN [Concomitant]
     Indication: PRODUCT USED FOR UNKNOWN INDICATION
  18. CALCIUM WITH VITAMIN D [Concomitant]
     Indication: PRODUCT USED FOR UNKNOWN INDICATION
  19. VICODIN [Concomitant]
     Indication: PRODUCT USED FOR UNKNOWN INDICATION

REACTIONS (6)
  - Rotator cuff syndrome [Not Recovered/Not Resolved]
  - Musculoskeletal pain [Not Recovered/Not Resolved]
  - Fall [Recovered/Resolved]
  - Arthritis [Not Recovered/Not Resolved]
  - Upper limb fracture [Recovered/Resolved]
  - Arthralgia [Not Recovered/Not Resolved]
